FAERS Safety Report 13409217 (Version 1)
Quarter: 2017Q2

REPORT INFORMATION
  Report Type: Spontaneous
  Country: US (occurrence: US)
  Receive Date: 20170406
  Receipt Date: 20170406
  Transmission Date: 20170830
  Serious: No
  Sender: FDA-Public Use
  Company Number: None

PATIENT

DRUGS (1)
  1. THROMBIN [Suspect]
     Active Substance: THROMBIN

REACTIONS (1)
  - Incorrect route of drug administration [None]
